FAERS Safety Report 8739405 (Version 3)
Quarter: 2013Q4

REPORT INFORMATION
  Report Type: Spontaneous
  Country: US (occurrence: US)
  Receive Date: 20120823
  Receipt Date: 20131105
  Transmission Date: 20140711
  Serious: Yes (Life-Threatening, Hospitalization)
  Sender: FDA-Public Use
  Company Number: US-009507513-1208USA007106

PATIENT
  Age: 49 Year
  Sex: Female
  Weight: 99.77 kg

DRUGS (3)
  1. SAPHRIS [Suspect]
     Dosage: UNK
  2. SAPHRIS [Suspect]
     Dosage: 5 MG, BID
  3. SEROQUEL [Concomitant]

REACTIONS (4)
  - Blood pressure decreased [Unknown]
  - Blood pressure decreased [Unknown]
  - Dizziness [Recovered/Resolved]
  - Syncope [Recovered/Resolved]
